FAERS Safety Report 10152442 (Version 2)
Quarter: 2014Q2

REPORT INFORMATION
  Report Type: Spontaneous
  Country: US (occurrence: US)
  Receive Date: 20140505
  Receipt Date: 20140505
  Transmission Date: 20141212
  Serious: No
  Sender: FDA-Public Use
  Company Number: US-TEVA-367338USA

PATIENT
  Age: 17 Year
  Sex: Male

DRUGS (1)
  1. CLARAVIS [Suspect]
     Dosage: 80 MILLIGRAM DAILY;
     Dates: start: 20120907, end: 20130411

REACTIONS (6)
  - Abdominal pain upper [Unknown]
  - Swelling face [Unknown]
  - Nasal oedema [Unknown]
  - Epistaxis [Unknown]
  - Localised infection [Unknown]
  - Chapped lips [Unknown]
